FAERS Safety Report 8756876 (Version 1)
Quarter: 2012Q4

REPORT INFORMATION
  Report Type: 
  Country: US (occurrence: US)
  Receive Date: 20120828
  Receipt Date: 20120828
  Transmission Date: 20130627
  Serious: Yes (Hospitalization)
  Sender: FDA-Public Use
  Company Number: US-BAYER-2012-086736

PATIENT
  Age: 35 Year
  Sex: Female
  Weight: 71.57 kg

DRUGS (10)
  1. YASMIN [Suspect]
  2. OCELLA [Suspect]
  3. ZOLOFT [Concomitant]
     Dosage: 100 mg, QD
  4. CALCIUM +VIT D [Concomitant]
  5. FISH OIL [Concomitant]
  6. B50 [Concomitant]
     Dosage: UNK UNK, QD
  7. FLUOXETINE HCL [Concomitant]
     Dosage: 20 mg, UNK
  8. PROZAC [Concomitant]
     Dosage: 20 mg, QD
  9. FLAXSEED [Concomitant]
  10. MVIT [Concomitant]

REACTIONS (1)
  - Pulmonary embolism [Recovered/Resolved]
